FAERS Safety Report 6371497-5 (Version None)
Quarter: 2009Q3

REPORT INFORMATION
  Report Type: 
  Country: None (occurrence: None)
  Receive Date: 20090923
  Receipt Date: 20071002
  Transmission Date: 20100115
  Serious: Yes (Other)
  Sender: FDA-Public Use
  Company Number: US-ASTRAZENECA-2007UW09459

PATIENT
  Age: 467 Month
  Sex: Female
  Weight: 130.6 kg

DRUGS (41)
  1. SEROQUEL [Suspect]
     Indication: ANXIETY
     Dosage: 25 MG-100 MG
     Route: 048
     Dates: start: 20020415
  2. SEROQUEL [Suspect]
     Indication: DEPRESSION
     Dosage: 25 MG-100 MG
     Route: 048
     Dates: start: 20020415
  3. SEROQUEL [Suspect]
     Route: 048
     Dates: start: 20020426, end: 20020726
  4. SEROQUEL [Suspect]
     Route: 048
     Dates: start: 20020426, end: 20020726
  5. ZYPREXA [Suspect]
     Indication: HALLUCINATION, AUDITORY
     Dates: start: 20010301, end: 20020401
  6. ZYPREXA [Suspect]
     Dates: start: 20010301, end: 20020401
  7. ZYPREXA [Suspect]
     Dates: start: 20010301, end: 20020401
  8. ZYPREXA [Suspect]
     Dosage: 5 MG- 100 MG
     Route: 048
     Dates: start: 20010313
  9. RISPERDAL [Suspect]
     Indication: PSYCHOTIC DISORDER
     Route: 048
     Dates: start: 20000424
  10. RISPERDAL [Suspect]
     Dates: start: 20000501, end: 20000801
  11. GEODON [Concomitant]
     Dates: start: 20061114
  12. CLONAZEPAM [Concomitant]
  13. METHOCARBAMOL [Concomitant]
  14. ALBUTEROL [Concomitant]
  15. PAXIL [Concomitant]
  16. BUSPIRONE HCL [Concomitant]
  17. METFORMIN HCL [Concomitant]
  18. FLUVOXAMINE MALEATE [Concomitant]
  19. GLIPIZIDE [Concomitant]
  20. PAROXETINE HCL [Concomitant]
  21. HYDROCODONE [Concomitant]
  22. PROPRANOLOL [Concomitant]
  23. CITALOPRAM [Concomitant]
  24. MIRAPEX [Concomitant]
  25. TRAMADOL HCL [Concomitant]
  26. GABAPENTIN [Concomitant]
  27. LEVOTHYROXINE SODIUM [Concomitant]
  28. LYRICA [Concomitant]
  29. HUMULIN R [Concomitant]
  30. AVANDIA [Concomitant]
  31. AMOXCIL [Concomitant]
  32. ADVAIR HFA [Concomitant]
  33. BECONASE [Concomitant]
  34. BUPROPION HCL [Concomitant]
  35. CELEXA [Concomitant]
  36. LANTUS [Concomitant]
  37. LEVAQUIN [Concomitant]
  38. NAPROXEN [Concomitant]
  39. PREDNISONE [Concomitant]
  40. WELLBUTRIN [Concomitant]
  41. KLONOPIN [Concomitant]

REACTIONS (4)
  - DIABETES MELLITUS [None]
  - DIABETES MELLITUS INADEQUATE CONTROL [None]
  - DIABETIC KETOACIDOSIS [None]
  - HYPOTHYROIDISM [None]
